FAERS Safety Report 21962582 (Version 1)
Quarter: 2023Q1

REPORT INFORMATION
  Report Type: Other
  Country: US (occurrence: US)
  Receive Date: 20230207
  Receipt Date: 20230207
  Transmission Date: 20230417
  Serious: No
  Sender: FDA-Public Use
  Company Number: US-DECIPHERA PHARMACEUTICALS LLC-2023US000058

PATIENT
  Sex: Male

DRUGS (1)
  1. QINLOCK [Suspect]
     Active Substance: RIPRETINIB
     Indication: Product used for unknown indication
     Dosage: 150 MILLIGRAM, BID
     Route: 048
     Dates: start: 20220927

REACTIONS (8)
  - Hair texture abnormal [Unknown]
  - Sinusitis [Unknown]
  - Loss of personal independence in daily activities [Unknown]
  - Skin exfoliation [Unknown]
  - Madarosis [Unknown]
  - Pain in extremity [Unknown]
  - Hyperkeratosis [Unknown]
  - Alopecia [Unknown]

NARRATIVE: CASE EVENT DATE: 20230118
